FAERS Safety Report 8829844 (Version 6)
Quarter: 2013Q2

REPORT INFORMATION
  Report Type: Report from Study
  Country: US (occurrence: US)
  Receive Date: 20121008
  Receipt Date: 20130514
  Transmission Date: 20140414
  Serious: Yes (Hospitalization)
  Sender: FDA-Public Use
  Company Number: US-ROCHE-1074336

PATIENT
  Sex: Female

DRUGS (5)
  1. PEGASYS [Suspect]
     Indication: CHRONIC HEPATITIS C
     Route: 058
     Dates: start: 20120504
  2. COPEGUS [Suspect]
     Indication: CHRONIC HEPATITIS C
     Dosage: DIVIDED DOSES OF 600/400
     Route: 065
     Dates: start: 20120504
  3. COPEGUS [Suspect]
     Route: 065
  4. TELAPREVIR [Suspect]
     Indication: CHRONIC HEPATITIS C
     Route: 065
  5. PROCRIT [Concomitant]

REACTIONS (18)
  - Anaemia [Unknown]
  - Anaemia [Not Recovered/Not Resolved]
  - Dry skin [Unknown]
  - Nausea [Unknown]
  - Insomnia [Recovered/Resolved]
  - Red blood cell count decreased [Unknown]
  - Pruritus [Unknown]
  - Depression [Unknown]
  - Blood potassium decreased [Unknown]
  - Blood disorder [Unknown]
  - Diverticulitis [Recovered/Resolved]
  - Affective disorder [Unknown]
  - Viral load decreased [Unknown]
  - Rash [Unknown]
  - Alopecia [Unknown]
  - Abnormal faeces [Unknown]
  - Disturbance in attention [Unknown]
  - Mental impairment [Unknown]
